FAERS Safety Report 9915983 (Version 4)
Quarter: 2014Q3

REPORT INFORMATION
  Report Type: Spontaneous
  Country: US (occurrence: US)
  Receive Date: 20140221
  Receipt Date: 20140708
  Transmission Date: 20150326
  Serious: Yes (Hospitalization, Disabling, Other)
  Sender: FDA-Public Use
  Company Number: US-009507513-1203USA02902

PATIENT
  Sex: Male
  Weight: 118.82 kg

DRUGS (4)
  1. FOSAMAX PLUS D [Suspect]
     Active Substance: ALENDRONATE SODIUM\CHOLECALCIFEROL
     Dosage: 70MG/2800IU
     Route: 048
  2. ALENDRONATE SODIUM. [Suspect]
     Active Substance: ALENDRONATE SODIUM
     Indication: OSTEOPOROSIS
     Dosage: UNK
  3. FOSAMAX [Suspect]
     Active Substance: ALENDRONATE SODIUM
     Dosage: 70 MG, QW
     Route: 048
  4. FOSAMAX [Suspect]
     Active Substance: ALENDRONATE SODIUM
     Dosage: UNK
     Route: 048

REACTIONS (23)
  - Intramedullary rod insertion [Unknown]
  - Femur fracture [Unknown]
  - Osteoarthritis [Unknown]
  - Bullous lung disease [Not Recovered/Not Resolved]
  - Major depression [Recovered/Resolved]
  - Tibia fracture [Unknown]
  - Bone disorder [Not Recovered/Not Resolved]
  - Osteopenia [Unknown]
  - Emphysema [Unknown]
  - Hypertriglyceridaemia [Unknown]
  - Fibula fracture [Recovering/Resolving]
  - Monoclonal gammopathy [Unknown]
  - Femur fracture [Recovered/Resolved]
  - Staphylococcal infection [Unknown]
  - Pleural fibrosis [Not Recovered/Not Resolved]
  - Interstitial lung disease [Not Recovered/Not Resolved]
  - Chronic obstructive pulmonary disease [Not Recovered/Not Resolved]
  - Hypercalciuria [Unknown]
  - Tibia fracture [Recovering/Resolving]
  - Closed fracture manipulation [Unknown]
  - Osteoporosis [Unknown]
  - Pathological fracture [Unknown]
  - Testicular failure [Unknown]

NARRATIVE: CASE EVENT DATE: 1997
